FAERS Safety Report 25136428 (Version 2)
Quarter: 2025Q2

REPORT INFORMATION
  Report Type: Report from Study
  Country: US (occurrence: US)
  Receive Date: 20250328
  Receipt Date: 20250415
  Transmission Date: 20250717
  Serious: Yes (Hospitalization, Other)
  Sender: TEVA
  Company Number: US-TEVA-VS-3246646

PATIENT
  Age: 0 Day
  Sex: Male

DRUGS (13)
  1. ATENOLOL [Suspect]
     Active Substance: ATENOLOL
     Indication: Migraine prophylaxis
     Dosage: QD
     Route: 064
     Dates: start: 202306
  2. PRISTIQ EXTENDED-RELEASE [Suspect]
     Active Substance: DESVENLAFAXINE SUCCINATE
     Indication: Migraine prophylaxis
     Route: 064
     Dates: start: 202308
  3. PEPCID [Concomitant]
     Active Substance: FAMOTIDINE
     Indication: Pregnancy
     Dosage: QD
     Route: 064
     Dates: start: 20240804
  4. ASPIRIN [Concomitant]
     Active Substance: ASPIRIN
     Indication: Pregnancy
     Route: 064
     Dates: start: 20240804
  5. VITAMINS [Concomitant]
     Active Substance: VITAMINS
     Indication: Pregnancy
     Dosage: DOSE + UNIT: 1 TABLET, FREQUENCY: QD
     Route: 064
     Dates: start: 202401
  6. ZINC [Concomitant]
     Active Substance: ZINC
     Indication: Pregnancy
     Dosage: QD
     Route: 064
     Dates: start: 20240811
  7. VITAMIN C [Concomitant]
     Active Substance: ASCORBIC ACID
     Indication: Pregnancy
     Route: 064
     Dates: start: 20240811
  8. VITAMIN D3 [Concomitant]
     Active Substance: CHOLECALCIFEROL
     Indication: Pregnancy
     Route: 064
     Dates: start: 20240811
  9. COLLAGEN [Concomitant]
     Active Substance: COLLAGEN
     Indication: Product used for unknown indication
     Route: 064
     Dates: start: 202406
  10. ZOFRAN [Concomitant]
     Active Substance: ONDANSETRON HYDROCHLORIDE
     Indication: Nausea
     Route: 064
     Dates: start: 20230412
  11. PHENERGAN [Concomitant]
     Active Substance: PROMETHAZINE HYDROCHLORIDE
     Indication: Nausea
     Route: 064
     Dates: start: 20230412
  12. ZYRTEC [Concomitant]
     Active Substance: CETIRIZINE HYDROCHLORIDE
     Indication: Seasonal allergy
     Route: 064
     Dates: end: 20240914
  13. SINGULAIR [Concomitant]
     Active Substance: MONTELUKAST SODIUM
     Indication: Seasonal allergy
     Route: 064
     Dates: start: 20240915

REACTIONS (2)
  - Foetal distress syndrome [Recovered/Resolved]
  - Foetal exposure during pregnancy [Unknown]
